FAERS Safety Report 25527627 (Version 1)
Quarter: 2025Q3

REPORT INFORMATION
  Report Type: Spontaneous
  Country: CN (occurrence: CN)
  Receive Date: 20250708
  Receipt Date: 20250708
  Transmission Date: 20251020
  Serious: Yes (Other)
  Sender: ENDO
  Company Number: CN-ENDO USA, INC.-2025-001493

PATIENT
  Age: 15 Year
  Sex: Male

DRUGS (2)
  1. ETOMIDATE [Suspect]
     Active Substance: ETOMIDATE
     Indication: Substance use
     Dates: start: 2024, end: 2024
  2. COCAINE [Concomitant]
     Active Substance: COCAINE
     Indication: Product used for unknown indication
     Route: 065

REACTIONS (4)
  - Adrenal insufficiency [Unknown]
  - Drug abuse [Recovered/Resolved]
  - Affect lability [Unknown]
  - Substance-induced psychotic disorder [Unknown]

NARRATIVE: CASE EVENT DATE: 20240101
